FAERS Safety Report 14462336 (Version 2)
Quarter: 2018Q1

REPORT INFORMATION
  Report Type: Other
  Country: None (occurrence: US)
  Receive Date: 20180130
  Receipt Date: 20180214
  Transmission Date: 20180509
  Serious: Yes (Other)
  Sender: FDA-Public Use
  Company Number: US-BD MEDICAL-2041099

PATIENT

DRUGS (1)
  1. BD E-Z SCRUB 107 [Suspect]
     Active Substance: CHLORHEXIDINE GLUCONATE

REACTIONS (1)
  - Exposure to mould [Unknown]

NARRATIVE: CASE EVENT DATE: 20180123
